FAERS Safety Report 21614222 (Version 1)
Quarter: 2022Q4

REPORT INFORMATION
  Report Type: Spontaneous
  Country: US (occurrence: None)
  Receive Date: 20221117
  Receipt Date: 20221117
  Transmission Date: 20230112
  Serious: Yes (Disabling)
  Sender: FDA-Public Use
  Company Number: None

PATIENT
  Age: 15 Year
  Sex: Female
  Weight: 54 kg

DRUGS (3)
  1. HUMAN PAPILLOMAVIRUS QUADRIVALENT (TYPES 6, 11, 16, AND 18) VACCINE, R [Suspect]
     Active Substance: HUMAN PAPILLOMAVIRUS QUADRIVALENT (TYPES 6, 11, 16, AND 18) VACCINE, RECOMBINANT
     Indication: Human papilloma virus immunisation
     Dates: start: 20180101, end: 20190816
  2. SKYRIZI [Suspect]
     Active Substance: RISANKIZUMAB-RZAA
     Indication: Crohn^s disease
     Dates: start: 20221016
  3. SKYRIZI [Suspect]
     Active Substance: RISANKIZUMAB-RZAA
     Indication: Colitis

REACTIONS (10)
  - Colitis ulcerative [None]
  - Fatigue [None]
  - General physical health deterioration [None]
  - Unevaluable event [None]
  - Wound [None]
  - Proctalgia [None]
  - Illness [None]
  - Emotional disorder [None]
  - Educational problem [None]
  - Pain [None]

NARRATIVE: CASE EVENT DATE: 20190326
